FAERS Safety Report 14036435 (Version 1)
Quarter: 2017Q4

REPORT INFORMATION
  Report Type: Spontaneous
  Country: US (occurrence: US)
  Receive Date: 20171003
  Receipt Date: 20171003
  Transmission Date: 20180321
  Serious: No
  Sender: FDA-Public Use
  Company Number: US-ROCHE-1993801

PATIENT
  Sex: Female
  Weight: 49.03 kg

DRUGS (1)
  1. OCREVUS [Suspect]
     Active Substance: OCRELIZUMAB
     Indication: MULTIPLE SCLEROSIS RELAPSE
     Dosage: SECOND HALF OF DOSE GIVEN ON 07/SEP/2017
     Route: 065
     Dates: start: 20170523

REACTIONS (2)
  - Fatigue [Recovered/Resolved]
  - Limb discomfort [Recovered/Resolved]
